FAERS Safety Report 8278566-3 (Version None)
Quarter: 2012Q2

REPORT INFORMATION
  Report Type: 
  Country: None (occurrence: None)
  Receive Date: 20120412
  Receipt Date: 20110727
  Transmission Date: 20120825
  Serious: No
  Sender: FDA-Public Use
  Company Number: US-ASTRAZENECA-2011SE45159

PATIENT
  Sex: Female

DRUGS (7)
  1. NEXIUM [Suspect]
     Route: 048
  2. RANITIDINE [Concomitant]
  3. WELLBUTRIN [Concomitant]
  4. SYNTHROID [Concomitant]
  5. OMEPRAZOLE MAGNESIUM [Concomitant]
  6. MELOXICAM [Concomitant]
  7. TRAMADOL HCL [Concomitant]

REACTIONS (5)
  - JOINT SWELLING [None]
  - ARTHRALGIA [None]
  - JOINT STIFFNESS [None]
  - DYSPEPSIA [None]
  - DRUG DOSE OMISSION [None]
